FAERS Safety Report 9384193 (Version 2)
Quarter: 2013Q3

REPORT INFORMATION
  Report Type: Spontaneous
  Country: US (occurrence: US)
  Receive Date: 20130705
  Receipt Date: 20130823
  Transmission Date: 20140515
  Serious: Yes (Other)
  Sender: FDA-Public Use
  Company Number: US-B.I. PHARMACEUTICALS,INC./RIDGEFIELD-2013-BI-19005PF

PATIENT
  Age: 68 Year
  Sex: Male

DRUGS (13)
  1. SPIRIVA [Suspect]
     Indication: CHRONIC OBSTRUCTIVE PULMONARY DISEASE
     Dosage: 1 PUF
  2. ALBUTEROL(PROAIR)108(90BASE)MCG/ACT INHALER [Concomitant]
     Dosage: STRENGTH/DOSE: 108 (90 BASE) MCG/ACT INHALER
  3. ALBUTEROL(PROVENTIL)(2.5MG/ML)0.083% NEBULIZER [Concomitant]
     Dosage: STRENGTH/DOSE: 0.083% NEBULIZER SOLTION
  4. ALBUTEROL-IPRATROPIUM(DUONEB)0.5-2.5 MG/3 ML NEBULIZER [Concomitant]
     Dosage: STRENGTH:0.5-2.5 MG/ ML
  5. ASPIRIN 81 MG TABLET [Concomitant]
  6. ATORVASTATIN(LIPITOR) 10MG TABLET [Concomitant]
  7. CARVEDILOL(COREG) 25 MG TABLET [Concomitant]
  8. CO-ENZYME Q-10 50 MG CAPSULE [Concomitant]
  9. FLUTICASON-SALMETEROL(ADVAIR DISKUS) 250-50MCG/DOSE PER TABLET [Concomitant]
     Dosage: STRENGTH:250-50MCG/DASE AEPB
  10. FUROSEMIDE(LASIX) 20MG TABLET [Concomitant]
  11. HYDROCODON-ACETAMINOPHEN(LORTAB 10-500) 10-500 MG PER TABLET [Concomitant]
     Dosage: STRENGTH:10-500 MG
  12. PANTOPRAZOLE(PROTONIX) 40 MG TABLET [Concomitant]
  13. SPIRONOLACTONE(ALDACTONE) 25 MG TABLET [Concomitant]

REACTIONS (1)
  - Swollen tongue [Recovered/Resolved]
